FAERS Safety Report 8676204 (Version 2)
Quarter: 2012Q4

REPORT INFORMATION
  Report Type: 
  Country: FR (occurrence: FR)
  Receive Date: 20120720
  Receipt Date: 20120919
  Transmission Date: 20130627
  Serious: No
  Sender: FDA-Public Use
  Company Number: FR-ABBOTT-12P-056-0957111-00

PATIENT
  Age: 25 Year
  Sex: Male

DRUGS (7)
  1. HUMIRA 40 MG/ 0.8 ML PRE-FILLED SYRINGE [Suspect]
     Indication: COLITIS ULCERATIVE
     Dosage: 160 mg, 80 mg, and 40 mg
     Route: 058
     Dates: start: 20111114
  2. CORTANCYL [Concomitant]
     Indication: COLITIS ULCERATIVE
     Dosage: 1mg/kg
     Route: 048
  3. PENTASA [Concomitant]
     Route: 054
     Dates: start: 20111109, end: 20111209
  4. FIVASA [Concomitant]
     Dosage: 1-0-2 tablets decreased to 2 daily
     Route: 048
  5. DIFFU K [Concomitant]
     Indication: PRODUCT USED FOR UNKNOWN INDICATION
     Dates: start: 20111209
  6. CACIT D3 [Concomitant]
     Dates: start: 20111209
  7. ZYRTEC [Concomitant]
     Indication: ADVERSE EVENT

REACTIONS (3)
  - Tooth loss [Unknown]
  - Disturbance in attention [Unknown]
  - Injection site reaction [Unknown]
